FAERS Safety Report 7212534-5 (Version None)
Quarter: 2011Q1

REPORT INFORMATION
  Report Type: 
  Country: None (occurrence: None)
  Receive Date: 20110106
  Receipt Date: 20101223
  Transmission Date: 20110831
  Serious: Yes (Other)
  Sender: FDA-Public Use
  Company Number: PHEH2008US04392

PATIENT
  Sex: Male

DRUGS (36)
  1. INSULIN [Concomitant]
  2. PROCHLORPERAZINE [Concomitant]
     Dosage: 10 MG
  3. GABAPENTIN [Concomitant]
     Dosage: 300 MG
  4. SENNA [Concomitant]
  5. ASPIRIN [Concomitant]
     Dosage: UNK
  6. PREDNISONE [Concomitant]
     Dosage: UNK
  7. LORTAB [Concomitant]
     Dosage: 5 MG, UNK
  8. LANTUS [Concomitant]
     Dosage: 30 U, QPM
  9. AREDIA [Suspect]
     Dosage: UNK/ MONTHLY
     Dates: start: 20011201, end: 20040501
  10. AUGMENTIN '125' [Concomitant]
     Dosage: 875 MG, BID
     Route: 048
  11. KEFLEX [Concomitant]
  12. DIPHENOXYLATE [Concomitant]
     Dosage: 5 MG, Q4H PRN
  13. ASCORBIC ACID [Concomitant]
     Dosage: 500 MG, BID
  14. DEXAMETHASONE [Concomitant]
     Dosage: 10 MG, QD ON 4DAYS THEN OFF 4 DAYS
  15. FUROSEMIDE [Concomitant]
     Dosage: 20 MG
  16. OMNICEF [Concomitant]
     Dosage: 300 MG CAPSULES
  17. AMOXICILINA CLAV ^GEMINIS^ [Concomitant]
     Dosage: 125 MG
  18. VIAGRA [Concomitant]
     Dosage: 50 MG
  19. ACTOS [Concomitant]
     Dosage: 45 MG, QAM
     Route: 048
  20. CLINDAMYCIN [Concomitant]
     Dosage: 900 MG, UNK
  21. PEROXIDE [Concomitant]
     Dosage: 20 ML, BID SWISH AND SPIT
     Route: 048
  22. VITAMIN E [Concomitant]
     Dosage: 400 IU, QD
  23. HUMULIN R [Concomitant]
  24. LYRICA [Concomitant]
  25. VIOXX [Concomitant]
     Dosage: 25 MG
  26. DECADRON [Concomitant]
  27. PENICILLIN VK [Concomitant]
     Dosage: UNK
  28. NEURONTIN [Concomitant]
     Dosage: 600 MG, TID
     Route: 048
  29. RADIATION THERAPY [Concomitant]
  30. FLAGYL [Concomitant]
     Dosage: 500 MG / TID
  31. METRONIDAZOLE [Concomitant]
     Dosage: 500 MG TABLETS
  32. OXYCONTIN [Concomitant]
     Dosage: 80 MG, BID
  33. PERIDEX [Concomitant]
  34. ZYMAR [Concomitant]
     Dosage: UNK
  35. AMOXICILLIN [Concomitant]
     Dosage: %)) MG TABLETS
  36. CEPHALEXIN [Concomitant]
     Dosage: 500 MG

REACTIONS (38)
  - DECREASED IMMUNE RESPONSIVENESS [None]
  - ERECTILE DYSFUNCTION [None]
  - INJURY [None]
  - TOOTHACHE [None]
  - OSTEOMYELITIS [None]
  - PAIN IN JAW [None]
  - ANXIETY [None]
  - DECREASED APPETITE [None]
  - HYPERGLYCAEMIA [None]
  - THROMBOCYTOPENIA [None]
  - HAEMORRHOIDS [None]
  - IMPAIRED HEALING [None]
  - PATHOLOGICAL FRACTURE [None]
  - BONE FRAGMENTATION [None]
  - MALAISE [None]
  - POLLAKIURIA [None]
  - LEUKOCYTOSIS [None]
  - BACK PAIN [None]
  - FATIGUE [None]
  - ANAEMIA [None]
  - LUNG DISORDER [None]
  - SWELLING FACE [None]
  - PYREXIA [None]
  - OSTEONECROSIS OF JAW [None]
  - INFECTION [None]
  - BONE EROSION [None]
  - COMPRESSION FRACTURE [None]
  - SPEECH DISORDER [None]
  - DENTAL CARIES [None]
  - JAW FRACTURE [None]
  - PURULENCE [None]
  - SINUS DISORDER [None]
  - BONE DENSITY DECREASED [None]
  - OSTEOARTHRITIS [None]
  - BONE DISORDER [None]
  - OSTEITIS [None]
  - HYPERTENSION [None]
  - PERIRECTAL ABSCESS [None]
